FAERS Safety Report 8158767-5 (Version None)
Quarter: 2012Q1

REPORT INFORMATION
  Report Type: 
  Country: None (occurrence: None)
  Receive Date: 20120223
  Receipt Date: 20120217
  Transmission Date: 20120608
  Serious: Yes (Other)
  Sender: FDA-Public Use
  Company Number: US-PFIZER INC-2012043546

PATIENT
  Sex: Female
  Weight: 113 kg

DRUGS (6)
  1. LYRICA [Suspect]
     Dosage: 150 MG, 1X/DAY
     Route: 048
     Dates: start: 20111201
  2. PLAQUENIL [Concomitant]
     Indication: SYSTEMIC LUPUS ERYTHEMATOSUS
     Dosage: UNK
  3. LOSARTAN [Concomitant]
     Indication: CARDIAC FAILURE CONGESTIVE
     Dosage: UNK
  4. LYRICA [Suspect]
     Indication: FIBROMYALGIA
     Dosage: 75 MG, 1X/DAY
     Route: 048
     Dates: start: 20111013
  5. IBUPROFEN (ADVIL) [Concomitant]
     Indication: OSTEOARTHRITIS
     Dosage: UNK
  6. METOPROLOL [Concomitant]
     Indication: CARDIAC FAILURE CONGESTIVE
     Dosage: UNK

REACTIONS (5)
  - SWELLING [None]
  - AMNESIA [None]
  - SOMNOLENCE [None]
  - INSOMNIA [None]
  - WEIGHT INCREASED [None]
